FAERS Safety Report 25868752 (Version 1)
Quarter: 2025Q4

REPORT INFORMATION
  Report Type: Spontaneous
  Country: CA (occurrence: CA)
  Receive Date: 20251001
  Receipt Date: 20251001
  Transmission Date: 20260119
  Serious: Yes (Hospitalization, Other)
  Sender: AUROBINDO
  Company Number: CA-AUROBINDO-AUR-APL-2025-049390

PATIENT
  Age: 9 Year
  Sex: Male
  Weight: 35 kg

DRUGS (2)
  1. AMOXICILLIN [Suspect]
     Active Substance: AMOXICILLIN
     Indication: Rhinorrhoea
     Dosage: 1500 MILLIGRAM, TWO TIMES A DAY
     Route: 048
  2. DIPHENHYDRAMINE [Concomitant]
     Active Substance: DIPHENHYDRAMINE
     Indication: Product used for unknown indication
     Dosage: UNK
     Route: 065

REACTIONS (10)
  - Erythema multiforme [Recovered/Resolved]
  - Vomiting [Recovered/Resolved]
  - Conjunctivitis [Recovered/Resolved]
  - Hypersensitivity [Recovered/Resolved]
  - Lip dry [Recovered/Resolved]
  - Macule [Recovered/Resolved]
  - Pruritus [Recovered/Resolved]
  - Pyrexia [Recovered/Resolved]
  - Rash [Recovered/Resolved]
  - Skin lesion [Recovered/Resolved]
